FAERS Safety Report 5234380-4 (Version None)
Quarter: 2007Q1

REPORT INFORMATION
  Report Type: 
  Country: None (occurrence: None)
  Receive Date: 20070209
  Receipt Date: 20070202
  Transmission Date: 20070707
  Serious: Yes (Other)
  Sender: FDA-Public Use
  Company Number: AU-ROCHE-475171

PATIENT
  Age: 83 Year
  Sex: Male
  Weight: 79 kg

DRUGS (2)
  1. CAPECITABINE [Suspect]
     Dosage: ADMINISTERED IN 2 DAILY DIVIDED DOSES ON DAYS 1-14 OF A 3 WEEK CYCLE
     Route: 048
     Dates: start: 20060830
  2. BEVACIZUMAB [Suspect]
     Dosage: ADMINISTERED ON DAY 1 OF EACH 3 WEEK CYCLE
     Route: 042
     Dates: start: 20060830

REACTIONS (2)
  - LEUKOENCEPHALOPATHY [None]
  - SPLENIC INFARCTION [None]
